FAERS Safety Report 6854878-2 (Version None)
Quarter: 2010Q3

REPORT INFORMATION
  Report Type: 
  Country: None (occurrence: None)
  Receive Date: 20100717
  Receipt Date: 20080229
  Transmission Date: 20110219
  Serious: Yes (Death)
  Sender: FDA-Public Use
  Company Number: US-PFIZER INC-2008004418

PATIENT
  Age: 55 Year
  Sex: Male

DRUGS (1)
  1. CHANTIX [Suspect]
     Dates: start: 20071001

REACTIONS (4)
  - ANXIETY [None]
  - COMPLETED SUICIDE [None]
  - INSOMNIA [None]
  - PANIC ATTACK [None]
